FAERS Safety Report 4377243-9 (Version None)
Quarter: 2004Q2

REPORT INFORMATION
  Report Type: 
  Country: None (occurrence: None)
  Receive Date: 20040609
  Receipt Date: 20040318
  Transmission Date: 20050107
  Serious: No
  Sender: FDA-Public Use
  Company Number: 2004205405US

PATIENT

DRUGS (12)
  1. BEXTRA [Suspect]
     Indication: ARTHRITIS
     Dosage: 20 MG, QD
  2. INSULIN [Concomitant]
  3. ACTOS [Concomitant]
  4. NORVASC [Concomitant]
  5. HYZAAR [Concomitant]
  6. CLONIDINE HCL [Concomitant]
  7. ZIAC [Concomitant]
  8. ASPIRIN [Concomitant]
  9. CENTRUM SILVER (VITAMIN B NOS, VITAMINS NOS, RETINOL) [Concomitant]
  10. DIOVAN [Concomitant]
  11. DARVOCET-N 100 [Concomitant]
  12. VALIUM [Concomitant]

REACTIONS (1)
  - FALL [None]
